FAERS Safety Report 23822861 (Version 2)
Quarter: 2024Q2

REPORT INFORMATION
  Report Type: Spontaneous
  Country: US (occurrence: US)
  Receive Date: 20240506
  Receipt Date: 20240507
  Transmission Date: 20240716
  Serious: No
  Sender: FDA-Public Use
  Company Number: US-ABBVIE-5742684

PATIENT
  Sex: Female

DRUGS (1)
  1. BOTOX [Suspect]
     Active Substance: ONABOTULINUMTOXINA
     Indication: Torticollis
     Dosage: TIME INTERVAL: AS NECESSARY
     Route: 030

REACTIONS (6)
  - Nasopharyngitis [Unknown]
  - Feeling abnormal [Unknown]
  - Headache [Recovering/Resolving]
  - Lethargy [Unknown]
  - Fatigue [Unknown]
  - Posture abnormal [Unknown]
